FAERS Safety Report 9663162 (Version 2)
Quarter: 2014Q1

REPORT INFORMATION
  Report Type: Spontaneous
  Country: US (occurrence: US)
  Receive Date: 20131101
  Receipt Date: 20140205
  Transmission Date: 20141002
  Serious: Yes (Other)
  Sender: FDA-Public Use
  Company Number: US-ASTRAZENECA-2013SE78795

PATIENT
  Sex: Female

DRUGS (2)
  1. BRILINTA [Suspect]
     Indication: STENT PLACEMENT
     Route: 048
     Dates: start: 201310
  2. OMEPRAZOLE [Suspect]
     Route: 048

REACTIONS (5)
  - Myocardial infarction [Unknown]
  - Thrombosis in device [Unknown]
  - Hypercoagulation [Unknown]
  - Protein C decreased [Unknown]
  - Drug level below therapeutic [Unknown]
